FAERS Safety Report 14390794 (Version 2)
Quarter: 2018Q1

REPORT INFORMATION
  Report Type: Spontaneous
  Country: FR (occurrence: FR)
  Receive Date: 20180116
  Receipt Date: 20180215
  Transmission Date: 20180509
  Serious: Yes (Other)
  Sender: FDA-Public Use
  Company Number: FR-MERCK KGAA-2040082

PATIENT
  Age: 72 Year
  Sex: Female
  Weight: 96 kg

DRUGS (2)
  1. NOVOTHYROX [Suspect]
     Active Substance: LEVOTHYROXINE SODIUM
     Indication: THYROIDECTOMY
     Route: 048
     Dates: start: 19911201, end: 20171002
  2. NOVOTHYROX [Suspect]
     Active Substance: LEVOTHYROXINE SODIUM
     Route: 048
     Dates: start: 19911201, end: 20171002

REACTIONS (12)
  - Pruritus [Not Recovered/Not Resolved]
  - Dyspnoea [Not Recovered/Not Resolved]
  - Pallor [Not Recovered/Not Resolved]
  - Epistaxis [Recovering/Resolving]
  - Fatigue [Recovering/Resolving]
  - Arrhythmia [Recovering/Resolving]
  - Hyperhidrosis [Not Recovered/Not Resolved]
  - Diffuse alopecia [Recovering/Resolving]
  - Oedema peripheral [Recovering/Resolving]
  - Nausea [Not Recovered/Not Resolved]
  - Throat tightness [Recovering/Resolving]
  - Vertigo [Recovering/Resolving]

NARRATIVE: CASE EVENT DATE: 20170501
